FAERS Safety Report 24029748 (Version 2)
Quarter: 2024Q4

REPORT INFORMATION
  Report Type: Spontaneous
  Country: US (occurrence: US)
  Receive Date: 20240628
  Receipt Date: 20241001
  Transmission Date: 20250114
  Serious: Yes (Death, Hospitalization)
  Sender: BAUSCH AND LOMB
  Company Number: US-BAUSCH-BL-2024-009608

PATIENT
  Age: 61 Year
  Sex: Female

DRUGS (4)
  1. METFORMIN [Suspect]
     Active Substance: METFORMIN HYDROCHLORIDE
     Indication: Product used for unknown indication
     Route: 065
  2. TYLENOL [Suspect]
     Active Substance: ACETAMINOPHEN
     Indication: Sciatica
     Dosage: CHRONICALLY
     Route: 065
  3. KETAMINE [Suspect]
     Active Substance: KETAMINE
     Indication: Pain management
     Route: 065
  4. IBUPROFEN [Concomitant]
     Active Substance: IBUPROFEN
     Indication: Sciatica
     Route: 065

REACTIONS (12)
  - Brain injury [Fatal]
  - Metabolic alkalosis [Fatal]
  - Brain death [Fatal]
  - Cardiac arrest [Fatal]
  - Toxicity to various agents [Fatal]
  - Acute respiratory failure [Fatal]
  - Metabolic acidosis [Fatal]
  - Ketoacidosis [Fatal]
  - Mental status changes [Unknown]
  - Hypotension [Recovered/Resolved]
  - Hypoglycaemia [Recovered/Resolved]
  - Lactic acidosis [Fatal]

NARRATIVE: CASE EVENT DATE: 20221001
